FAERS Safety Report 8030259-3 (Version None)
Quarter: 2012Q1

REPORT INFORMATION
  Report Type: 
  Country: None (occurrence: None)
  Receive Date: 20120109
  Receipt Date: 20120102
  Transmission Date: 20120608
  Serious: Yes (Hospitalization, Other)
  Sender: FDA-Public Use
  Company Number: PHHY2011TW113295

PATIENT
  Sex: Male
  Weight: 69.2 kg

DRUGS (6)
  1. ENALAPRIL MALEATE [Concomitant]
     Dosage: 10 MG, QD
     Route: 048
  2. BOKEY [Concomitant]
     Dosage: 100 MG, QD
     Route: 048
  3. TASIGNA [Suspect]
     Indication: CHRONIC MYELOID LEUKAEMIA
     Dosage: 800 MG, UNK
     Route: 048
     Dates: start: 20111216
  4. NARCARICIN [Concomitant]
     Dosage: 50 MG, QD
     Route: 048
  5. FUROSEMIDE [Concomitant]
     Dosage: 40 MG, BID
     Route: 048
  6. DOXAZOSIN MESYLATE [Concomitant]
     Dosage: 3 MG, BID
     Route: 048

REACTIONS (18)
  - URINE OUTPUT DECREASED [None]
  - ELECTROCARDIOGRAM POOR R-WAVE PROGRESSION [None]
  - CHEST PAIN [None]
  - PULMONARY OEDEMA [None]
  - CARDIAC ENZYMES INCREASED [None]
  - HYPERTENSION [None]
  - CARDIAC FAILURE [None]
  - ASTHENIA [None]
  - PLEURAL EFFUSION [None]
  - CARDIOMEGALY [None]
  - COUGH [None]
  - DYSPNOEA [None]
  - SINUS TACHYCARDIA [None]
  - DECREASED APPETITE [None]
  - CHEST DISCOMFORT [None]
  - ORTHOPNOEA [None]
  - WHEEZING [None]
  - ELECTROCARDIOGRAM ST SEGMENT DEPRESSION [None]
